FAERS Safety Report 5201752-3 (Version None)
Quarter: 2007Q1

REPORT INFORMATION
  Report Type: 
  Country: None (occurrence: None)
  Receive Date: 20070104
  Receipt Date: 20061221
  Transmission Date: 20070707
  Serious: Yes (Hospitalization)
  Sender: FDA-Public Use
  Company Number: 2006JP004950

PATIENT
  Age: 87 Year
  Sex: Female
  Weight: 37.4 kg

DRUGS (8)
  1. VESICANE (SOLIFENACIN) TABLET, 5MG [Suspect]
     Indication: HYPERTONIC BLADDER
     Dosage: 5MG, UID/QD; ORAL
     Route: 048
     Dates: start: 20060810
  2. DENISPAN (DISTIGMINE BROMIDE) [Concomitant]
  3. DAIPHEN (SULFAMETHOXAZOLE, TRIMETHOPRIM) [Concomitant]
  4. ASCOMP (ALDIOXA) [Concomitant]
  5. PRAVASTATIN [Concomitant]
  6. BUP-V (PROPIVERINE HYDROCHLORIDE) [Concomitant]
  7. NORVASC [Concomitant]
  8. STOGAR (LAFUTIDINE) [Concomitant]

REACTIONS (10)
  - ALANINE AMINOTRANSFERASE INCREASED [None]
  - ANOREXIA [None]
  - ASPARTATE AMINOTRANSFERASE INCREASED [None]
  - BLOOD ALKALINE PHOSPHATASE INCREASED [None]
  - BLOOD BILIRUBIN INCREASED [None]
  - FATIGUE [None]
  - GAMMA-GLUTAMYLTRANSFERASE INCREASED [None]
  - HEPATIC FUNCTION ABNORMAL [None]
  - MALAISE [None]
  - PRURITUS [None]
